FAERS Safety Report 7291402-7 (Version None)
Quarter: 2011Q1

REPORT INFORMATION
  Report Type: 
  Country: None (occurrence: None)
  Receive Date: 20110214
  Receipt Date: 20110204
  Transmission Date: 20110831
  Serious: Yes (Hospitalization)
  Sender: FDA-Public Use
  Company Number: B0698735A

PATIENT
  Sex: Male
  Weight: 53 kg

DRUGS (25)
  1. TACROLIMUS [Concomitant]
     Route: 048
  2. GASTER [Concomitant]
     Dosage: 20MG PER DAY
     Route: 042
     Dates: start: 20100209, end: 20100303
  3. KYTRIL [Concomitant]
     Dosage: 6MG PER DAY
     Dates: start: 20100209, end: 20100314
  4. FUNGUARD [Concomitant]
     Dosage: 150MG PER DAY
     Dates: start: 20100209, end: 20100331
  5. DIFLUCAN [Concomitant]
     Dosage: 200MG PER DAY
     Route: 048
     Dates: start: 20100209, end: 20100402
  6. TACROLIMUS [Concomitant]
     Indication: IMMUNOSUPPRESSION
     Dosage: 1.6MG PER DAY
     Dates: start: 20100211
  7. METHOTREXATE [Concomitant]
     Indication: IMMUNOSUPPRESSION
     Dosage: 10MG PER DAY
     Dates: start: 20100214, end: 20100214
  8. FLUDARA [Suspect]
     Indication: STEM CELL TRANSPLANT
     Dosage: 50MGM2 PER DAY
     Route: 042
     Dates: start: 20100204, end: 20100208
  9. THYMOGLOBULIN [Suspect]
     Indication: STEM CELL TRANSPLANT
     Dosage: 66MGM2 PER DAY
     Route: 042
     Dates: start: 20100210, end: 20100211
  10. PIPERACILLIN SODIUM [Concomitant]
     Dosage: 4G PER DAY
     Dates: start: 20100209, end: 20100216
  11. ROCEPHIN [Concomitant]
     Dosage: 4G PER DAY
     Route: 042
     Dates: start: 20100228, end: 20100301
  12. VANCOMYCIN HYDROCHLORIDE [Concomitant]
     Dosage: 1.5G PER DAY
     Route: 048
     Dates: start: 20100209, end: 20100305
  13. BAKTAR [Concomitant]
     Dosage: 2IUAX PER DAY
     Route: 048
     Dates: start: 20100225
  14. GASTER D [Concomitant]
     Dosage: 20MG PER DAY
     Route: 048
     Dates: start: 20100304
  15. ITRIZOLE [Concomitant]
     Route: 048
     Dates: start: 20100401
  16. ALKERAN [Suspect]
     Indication: STEM CELL TRANSPLANT
     Dosage: 112MGM2 PER DAY
     Route: 042
     Dates: start: 20100209, end: 20100210
  17. GRAN [Concomitant]
     Dates: start: 20100213, end: 20100226
  18. METHOTREXATE [Concomitant]
     Dosage: 10MG PER DAY
     Dates: start: 20100218, end: 20100218
  19. SOL-MELCORT [Concomitant]
     Indication: IMMUNOSUPPRESSION
     Dosage: 125MG PER DAY
     Route: 042
     Dates: start: 20100210, end: 20100211
  20. FRAGMIN [Concomitant]
     Dosage: 4ML PER DAY
     Route: 042
     Dates: start: 20100209, end: 20100330
  21. ZOVIRAX [Concomitant]
     Dosage: 1000MG PER DAY
     Route: 048
     Dates: start: 20100209, end: 20100321
  22. EPADEL [Concomitant]
     Dosage: 1800MG PER DAY
     Route: 048
     Dates: start: 20100209, end: 20100430
  23. TIENAM [Concomitant]
     Dosage: 29IUAX PER DAY
     Dates: start: 20100217, end: 20100222
  24. SOLU-CORTEF [Concomitant]
     Indication: IMMUNOSUPPRESSION
     Dosage: 400MG PER DAY
     Dates: start: 20100204, end: 20100212
  25. POLYMYXIN-B-SULFATE [Concomitant]
     Dosage: 3IU6 PER DAY
     Route: 048
     Dates: start: 20100209, end: 20100305

REACTIONS (1)
  - HUMAN HERPESVIRUS 6 INFECTION [None]
